FAERS Safety Report 22292268 (Version 4)
Quarter: 2023Q2

REPORT INFORMATION
  Report Type: Spontaneous
  Country: DE (occurrence: DE)
  Receive Date: 20230508
  Receipt Date: 20230630
  Transmission Date: 20230721
  Serious: Yes (Hospitalization, Other)
  Sender: FDA-Public Use
  Company Number: DE-SA-2023SA140352

PATIENT
  Age: 54 Year
  Sex: Male

DRUGS (6)
  1. ALPROLIX [Suspect]
     Active Substance: EFTRENONACOG ALFA
     Indication: Product used for unknown indication
     Dosage: 3000 IU, QW
     Route: 065
     Dates: start: 202210
  2. ALPROLIX [Suspect]
     Active Substance: EFTRENONACOG ALFA
     Indication: Product used for unknown indication
     Dosage: 3000 IU, QW
     Route: 065
     Dates: start: 202210
  3. ALPROLIX [Suspect]
     Active Substance: EFTRENONACOG ALFA
     Dosage: 3000 (UNIT NOT PROVIDED) (MONDAY)
     Route: 065
     Dates: start: 20230626, end: 20230626
  4. ALPROLIX [Suspect]
     Active Substance: EFTRENONACOG ALFA
     Dosage: 3000 (UNIT NOT PROVIDED) (MONDAY)
     Route: 065
     Dates: start: 20230626, end: 20230626
  5. ALPROLIX [Suspect]
     Active Substance: EFTRENONACOG ALFA
     Dosage: 3000 (UNIT NOT PROVIDED)
     Route: 065
     Dates: start: 20230628, end: 20230628
  6. ALPROLIX [Suspect]
     Active Substance: EFTRENONACOG ALFA
     Dosage: 3000 (UNIT NOT PROVIDED)
     Route: 065
     Dates: start: 20230628, end: 20230628

REACTIONS (11)
  - Urinary retention [Recovering/Resolving]
  - Bladder hypertrophy [Unknown]
  - Flank pain [Unknown]
  - Urinary tract disorder [Unknown]
  - Benign prostatic hyperplasia [Recovering/Resolving]
  - Renal colic [Recovering/Resolving]
  - Haematuria [Recovering/Resolving]
  - Malaise [Not Recovered/Not Resolved]
  - Restlessness [Not Recovered/Not Resolved]
  - Asthenia [Not Recovered/Not Resolved]
  - Heart rate increased [Unknown]

NARRATIVE: CASE EVENT DATE: 20230401
